FAERS Safety Report 8792956 (Version 2)
Quarter: 2015Q2

REPORT INFORMATION
  Report Type: Report from Study
  Country: US (occurrence: US)
  Receive Date: 20120918
  Receipt Date: 20150618
  Transmission Date: 20150821
  Serious: Yes (Death)
  Sender: FDA-Public Use
  Company Number: US-ROCHE-1103458

PATIENT
  Sex: Female
  Weight: 63 kg

DRUGS (3)
  1. ONDANSETRON [Concomitant]
     Active Substance: ONDANSETRON
     Route: 065
  2. VELCADE [Concomitant]
     Active Substance: BORTEZOMIB
     Route: 042
  3. AVASTIN [Suspect]
     Active Substance: BEVACIZUMAB
     Indication: LEIOMYOSARCOMA
     Route: 042
     Dates: start: 20070522

REACTIONS (4)
  - Dry skin [Unknown]
  - Oedema peripheral [Unknown]
  - Death [Fatal]
  - Off label use [Unknown]
